FAERS Safety Report 11394952 (Version 2)
Quarter: 2015Q3

REPORT INFORMATION
  Report Type: Report from Study
  Country: US (occurrence: US)
  Receive Date: 20150819
  Receipt Date: 20150930
  Transmission Date: 20151125
  Serious: Yes (Hospitalization)
  Sender: FDA-Public Use
  Company Number: US-BAYER-2015-399362

PATIENT
  Age: 55 Year
  Sex: Male
  Weight: 71.2 kg

DRUGS (9)
  1. PROTONIX [Concomitant]
     Active Substance: PANTOPRAZOLE SODIUM
  2. IMODIUM [Concomitant]
     Active Substance: LOPERAMIDE HYDROCHLORIDE
  3. CYANOCOBALAMIN. [Concomitant]
     Active Substance: CYANOCOBALAMIN
     Dosage: 1000 MCG/ML
  4. APIXABAN [Concomitant]
     Active Substance: APIXABAN
  5. REGORAFENIB [Suspect]
     Active Substance: REGORAFENIB
     Indication: OESOPHAGEAL ADENOCARCINOMA
     Dosage: 120 MG ONCE DAILY
     Dates: start: 20150713, end: 20150801
  6. ATROPINE W/DIPHENOXYLATE [Concomitant]
     Active Substance: ATROPINE\DIPHENOXYLATE
     Dosage: 0.025 MG 2.5 MG
     Route: 048
  7. OXYMETAZOLINE [Concomitant]
     Active Substance: OXYMETAZOLINE
     Dosage: 0.05%
     Route: 045
  8. AMLACTIN [Concomitant]
     Active Substance: AMMONIUM LACTATE
     Dosage: 12%
     Route: 061
  9. PHAZYME [Concomitant]
     Active Substance: DIMETHICONE 410
     Dosage: 250 MG

REACTIONS (1)
  - Embolism [None]

NARRATIVE: CASE EVENT DATE: 20150804
